FAERS Safety Report 21923333 (Version 2)
Quarter: 2023Q1

REPORT INFORMATION
  Report Type: Report from Study
  Country: CO (occurrence: CO)
  Receive Date: 20230129
  Receipt Date: 20230131
  Transmission Date: 20230418
  Serious: Yes (Death, Life-Threatening, Hospitalization)
  Sender: FDA-Public Use
  Company Number: CO-JNJFOC-20230140817

PATIENT
  Age: 64 Year
  Sex: Male
  Weight: 52 kg

DRUGS (1)
  1. IMBRUVICA [Suspect]
     Active Substance: IBRUTINIB
     Indication: Mantle cell lymphoma
     Route: 048
     Dates: start: 20210724, end: 20221027

REACTIONS (4)
  - Death [Fatal]
  - Respiratory failure [Fatal]
  - Renal failure [Fatal]
  - Cough [Fatal]

NARRATIVE: CASE EVENT DATE: 20230114
